FAERS Safety Report 7586599-5 (Version None)
Quarter: 2011Q3

REPORT INFORMATION
  Report Type: 
  Country: None (occurrence: None)
  Receive Date: 20110701
  Receipt Date: 20110623
  Transmission Date: 20111222
  Serious: Yes (Hospitalization)
  Sender: FDA-Public Use
  Company Number: US-US-EMD SERONO, INC.-7067003

PATIENT
  Sex: Female

DRUGS (3)
  1. NOVOLOG [Concomitant]
     Indication: DIABETES MELLITUS
  2. REBIF [Suspect]
     Indication: MULTIPLE SCLEROSIS
     Route: 058
     Dates: start: 20031215
  3. LANTUS [Concomitant]
     Indication: DIABETES MELLITUS

REACTIONS (3)
  - UNRESPONSIVE TO STIMULI [None]
  - MUSCULAR WEAKNESS [None]
  - DEHYDRATION [None]
